FAERS Safety Report 7386228-X (Version None)
Quarter: 2011Q1

REPORT INFORMATION
  Report Type: 
  Country: None (occurrence: None)
  Receive Date: 20110323
  Receipt Date: 20110308
  Transmission Date: 20110831
  Serious: Yes (Hospitalization)
  Sender: FDA-Public Use
  Company Number: 028959

PATIENT
  Age: 84 Year
  Sex: Female

DRUGS (7)
  1. ASPIRIN [Concomitant]
  2. CONIEL [Concomitant]
  3. KEPPRA [Suspect]
     Indication: EPILEPSY
     Dosage: 500 MG BID, ORAL;
     Route: 048
  4. FRANDOL [Concomitant]
  5. TEGRETOL [Concomitant]
  6. GASMOTIN [Concomitant]
  7. GASTER D [Concomitant]

REACTIONS (2)
  - URINARY RETENTION [None]
  - NEUROGENIC BLADDER [None]
